FAERS Safety Report 19317713 (Version 1)
Quarter: 2021Q2

REPORT INFORMATION
  Report Type: Spontaneous
  Country: US (occurrence: US)
  Receive Date: 20210528
  Receipt Date: 20210528
  Transmission Date: 20210717
  Serious: Yes (Death)
  Sender: FDA-Public Use
  Company Number: US-FARMAPROD-202105-0771

PATIENT
  Sex: Female

DRUGS (24)
  1. POTASSIUM [Concomitant]
     Active Substance: POTASSIUM
     Dosage: 595 (99) MG
  2. PREDNISONE. [Concomitant]
     Active Substance: PREDNISONE
  3. VITAMIN B COMPLEX [Concomitant]
     Active Substance: CYANOCOBALAMIN\DEXPANTHENOL\NIACINAMIDE\PYRIDOXINE HYDROCHLORIDE\RIBOFLAVIN 5^-PHOSPHATE SODIUM\THIAMINE HYDROCHLORIDE\VITAMIN B COMPLEX
  4. TYLENOL [Concomitant]
     Active Substance: ACETAMINOPHEN
  5. VITAMIN D3 [Concomitant]
     Active Substance: CHOLECALCIFEROL
  6. VALSARTAN. [Concomitant]
     Active Substance: VALSARTAN
  7. BENZONATATE. [Concomitant]
     Active Substance: BENZONATATE
  8. NEUPOGEN [Concomitant]
     Active Substance: FILGRASTIM
     Dosage: 480 MCG/1.6 ML VIAL
  9. BIOTIN [Concomitant]
     Active Substance: BIOTIN
  10. CYRAMZA [Concomitant]
     Active Substance: RAMUCIRUMAB
     Dosage: 100 MG/10 ML VIAL
  11. OXERVATE [Suspect]
     Active Substance: CENEGERMIN-BKBJ
     Indication: ULCERATIVE KERATITIS
  12. OXERVATE [Suspect]
     Active Substance: CENEGERMIN-BKBJ
     Indication: HYPOAESTHESIA EYE
  13. OMEPRAZOLE. [Concomitant]
     Active Substance: OMEPRAZOLE
  14. PROLIA [Concomitant]
     Active Substance: DENOSUMAB
  15. CALCIUM [Concomitant]
     Active Substance: CALCIUM
     Dosage: 500 (1250)
  16. GABAPENTIN. [Concomitant]
     Active Substance: GABAPENTIN
  17. DOCETAXEL. [Concomitant]
     Active Substance: DOCETAXEL
     Dosage: 160 MG/16 ML VIAL
  18. THERATEARS [Concomitant]
     Active Substance: CARBOXYMETHYLCELLULOSE SODIUM
  19. LEVOFLOXACIN. [Concomitant]
     Active Substance: LEVOFLOXACIN
  20. MULTIVITAMINS [Concomitant]
     Active Substance: VITAMINS
  21. OXERVATE [Suspect]
     Active Substance: CENEGERMIN-BKBJ
     Indication: NEUROTROPHIC KERATOPATHY
     Route: 047
     Dates: start: 20210421
  22. LOMOTIL [Concomitant]
     Active Substance: ATROPINE SULFATE\DIPHENOXYLATE HYDROCHLORIDE
     Dosage: 2.5 MG/0.25 MG
  23. BACTRIM [Concomitant]
     Active Substance: SULFAMETHOXAZOLE\TRIMETHOPRIM
  24. LEVOTHYROXINE. [Concomitant]
     Active Substance: LEVOTHYROXINE

REACTIONS (3)
  - Cough [Unknown]
  - Death [Fatal]
  - Dyspnoea [Unknown]
